FAERS Safety Report 15202305 (Version 1)
Quarter: 2018Q3

REPORT INFORMATION
  Report Type: Spontaneous
  Country: GB (occurrence: GB)
  Receive Date: 20180726
  Receipt Date: 20180726
  Transmission Date: 20181010
  Serious: Yes (Hospitalization)
  Sender: FDA-Public Use
  Company Number: GB-TEVA-2018-GB-930008

PATIENT
  Age: 53 Year
  Sex: Male
  Weight: 52 kg

DRUGS (13)
  1. PARACETAMOL [Concomitant]
     Active Substance: ACETAMINOPHEN
  2. HYDROXYCHLOROQUINE [Concomitant]
     Active Substance: HYDROXYCHLOROQUINE
  3. FLUCLOXACILLIN [Concomitant]
     Active Substance: FLUCLOXACILLIN
  4. PREDNISOLONE. [Concomitant]
     Active Substance: PREDNISOLONE
  5. MEROPENEM. [Concomitant]
     Active Substance: MEROPENEM
     Indication: PSEUDOMONAS INFECTION
     Dosage: STOPPED
  6. TRIMETHOPRIM. [Concomitant]
     Active Substance: TRIMETHOPRIM
  7. SEPTRIN [Concomitant]
     Active Substance: SULFAMETHOXAZOLE\TRIMETHOPRIM
  8. TRAMADOL. [Concomitant]
     Active Substance: TRAMADOL
  9. RAMIPRIL. [Concomitant]
     Active Substance: RAMIPRIL
  10. CIPROFLOXACIN. [Suspect]
     Active Substance: CIPROFLOXACIN
     Indication: OSTEOMYELITIS
     Route: 042
     Dates: start: 20160125, end: 20160126
  11. NITROFURANTOIN. [Concomitant]
     Active Substance: NITROFURANTOIN
     Route: 042
  12. PARAFFIN WHITE SOFT [Concomitant]
  13. LANSOPRAZOLE. [Concomitant]
     Active Substance: LANSOPRAZOLE

REACTIONS (3)
  - Mouth swelling [Recovered/Resolved]
  - Rash [Recovered/Resolved]
  - Paraesthesia oral [Recovered/Resolved]

NARRATIVE: CASE EVENT DATE: 20160125
